FAERS Safety Report 10239701 (Version 2)
Quarter: 2014Q2

REPORT INFORMATION
  Report Type: Spontaneous
  Country: FR (occurrence: FR)
  Receive Date: 20140616
  Receipt Date: 20140616
  Transmission Date: 20141212
  Serious: Yes (Hospitalization)
  Sender: FDA-Public Use
  Company Number: FR-SA-2014SA071198

PATIENT
  Age: 43 Year
  Sex: Male

DRUGS (16)
  1. OXALIPLATIN [Suspect]
     Indication: PRODUCT USED FOR UNKNOWN INDICATION
     Route: 042
     Dates: start: 201403
  2. FOLIC ACID [Suspect]
     Indication: PRODUCT USED FOR UNKNOWN INDICATION
     Route: 042
     Dates: start: 201403
  3. PRIMPERAN [Suspect]
     Indication: PRODUCT USED FOR UNKNOWN INDICATION
     Route: 048
     Dates: start: 20140401, end: 20140401
  4. TRANXENE [Suspect]
     Indication: PREMEDICATION
     Route: 065
     Dates: start: 20140401, end: 20140401
  5. FLUOROURACIL [Suspect]
     Indication: PRODUCT USED FOR UNKNOWN INDICATION
     Route: 042
     Dates: start: 201403
  6. ERBITUX [Suspect]
     Indication: PRODUCT USED FOR UNKNOWN INDICATION
     Route: 042
     Dates: start: 201403
  7. EMEND [Suspect]
     Indication: PRODUCT USED FOR UNKNOWN INDICATION
     Route: 048
     Dates: start: 20140401, end: 20140401
  8. ZOPHREN [Suspect]
     Indication: PREMEDICATION
     Route: 065
     Dates: start: 20140401, end: 20140401
  9. POLARAMINE [Suspect]
     Indication: HYPERSENSITIVITY
     Route: 042
     Dates: start: 20140401, end: 20140401
  10. IMODIUM [Concomitant]
     Route: 048
  11. SMECTA [Concomitant]
     Route: 048
  12. OXYNORM [Concomitant]
     Route: 048
  13. VERSATIS [Concomitant]
     Route: 003
  14. PARACETAMOL [Concomitant]
  15. XANAX [Concomitant]
     Route: 048
  16. STILNOX [Concomitant]
     Route: 048

REACTIONS (7)
  - Histiocytosis haematophagic [Recovered/Resolved]
  - Chills [Recovered/Resolved]
  - Thrombocytopenia [Recovered/Resolved]
  - Jaundice [Recovered/Resolved]
  - Blood bilirubin increased [Recovering/Resolving]
  - Leukopenia [Recovered/Resolved]
  - Serum ferritin increased [Recovering/Resolving]
